FAERS Safety Report 4824047-6 (Version None)
Quarter: 2005Q4

REPORT INFORMATION
  Report Type: 
  Country: None (occurrence: None)
  Receive Date: 20051109
  Receipt Date: 20051103
  Transmission Date: 20060501
  Serious: Yes (Other)
  Sender: FDA-Public Use
  Company Number: GB-AVENTIS-200519704GDDC

PATIENT
  Sex: Female

DRUGS (2)
  1. CLAFORAN [Suspect]
     Route: 042
  2. UNKNOWN DRUG [Concomitant]

REACTIONS (2)
  - BLINDNESS [None]
  - UVEITIS [None]
